FAERS Safety Report 9424652 (Version 1)
Quarter: 2013Q3

REPORT INFORMATION
  Report Type: Other
  Country: GB (occurrence: GB)
  Receive Date: 20130729
  Receipt Date: 20130729
  Transmission Date: 20140515
  Serious: Yes (Life-Threatening, Other)
  Sender: FDA-Public Use
  Company Number: GB-TARO PHARMACEUTICALS U.S.A., INC-2013SUN01075

PATIENT
  Age: 95 Year
  Sex: Male
  Weight: 56 kg

DRUGS (10)
  1. WARFARIN [Suspect]
     Indication: ATRIAL FIBRILLATION
     Route: 048
  2. CIPROFLOXACIN [Interacting]
     Indication: LOWER RESPIRATORY TRACT INFECTION
     Dosage: 500 MG, BID
     Route: 048
     Dates: start: 20121217
  3. CARBOCISTEINE [Concomitant]
  4. DIGOXIN [Concomitant]
     Dosage: 125 MCG, PER DAY
  5. FERROUS FUMARATE [Concomitant]
  6. FLUTICASONE [Concomitant]
  7. FUROSEMIDE [Concomitant]
     Dosage: 40 MG PER DAY
  8. IPRATROPIUM [Concomitant]
  9. LANSOPRAZOLE [Concomitant]
     Dosage: 30 MG, BID
  10. SALBUTAMOL [Concomitant]

REACTIONS (5)
  - Pneumonia [Unknown]
  - Dyspnoea [Unknown]
  - Haemoptysis [Unknown]
  - Drug interaction [Unknown]
  - International normalised ratio increased [Recovered/Resolved]
